FAERS Safety Report 7105614-6 (Version None)
Quarter: 2010Q4

REPORT INFORMATION
  Report Type: 
  Country: None (occurrence: None)
  Receive Date: 20101116
  Receipt Date: 20101102
  Transmission Date: 20110411
  Serious: Yes (Other)
  Sender: FDA-Public Use
  Company Number: US-ACTELION-A-NJ2010-41375

PATIENT

DRUGS (1)
  1. TRACLEER [Suspect]
     Route: 048

REACTIONS (1)
  - HEPATIC CIRRHOSIS [None]
